FAERS Safety Report 5975437-X (Version None)
Quarter: 2008Q4

REPORT INFORMATION
  Report Type: 
  Country: None (occurrence: None)
  Receive Date: 20081202
  Receipt Date: 20080121
  Transmission Date: 20090506
  Serious: Yes (Other)
  Sender: FDA-Public Use
  Company Number: US-AMGEN-QUU258075

PATIENT
  Sex: Male

DRUGS (6)
  1. ENBREL [Suspect]
     Indication: PSORIASIS
     Route: 058
     Dates: start: 20031211, end: 20070424
  2. ENBREL [Suspect]
     Indication: PSORIATIC ARTHROPATHY
  3. SYNTHROID [Concomitant]
     Dates: start: 20030201
  4. NEXIUM [Concomitant]
     Dates: start: 20050201
  5. LISINOPRIL [Concomitant]
     Dates: start: 20060201
  6. HUMIRA [Concomitant]
     Route: 058
     Dates: start: 20070612, end: 20071206

REACTIONS (3)
  - BLOOD TRIGLYCERIDES INCREASED [None]
  - PROSTATE CANCER RECURRENT [None]
  - RIB FRACTURE [None]
